FAERS Safety Report 7028326-6 (Version None)
Quarter: 2010Q4

REPORT INFORMATION
  Report Type: 
  Country: None (occurrence: None)
  Receive Date: 20101005
  Receipt Date: 20100916
  Transmission Date: 20110411
  Serious: Yes (Hospitalization)
  Sender: FDA-Public Use
  Company Number: JP-ROCHE-710652

PATIENT
  Sex: Female

DRUGS (9)
  1. TOCILIZUMAB [Suspect]
     Indication: RHEUMATOID ARTHRITIS
     Route: 041
     Dates: start: 20091030, end: 20091030
  2. TOCILIZUMAB [Suspect]
     Route: 041
     Dates: start: 20091127, end: 20091127
  3. TOCILIZUMAB [Suspect]
     Route: 041
     Dates: start: 20091225, end: 20091225
  4. TOCILIZUMAB [Suspect]
     Route: 041
     Dates: start: 20100122, end: 20100122
  5. TOCILIZUMAB [Suspect]
     Route: 041
     Dates: start: 20100219, end: 20100219
  6. TOCILIZUMAB [Suspect]
     Route: 041
     Dates: start: 20100324
  7. MEDROL [Concomitant]
     Route: 048
     Dates: start: 20090427, end: 20090630
  8. MEDROL [Concomitant]
     Route: 048
     Dates: start: 20090701
  9. CELECOXIB [Concomitant]
     Route: 048
     Dates: start: 20090902

REACTIONS (5)
  - ASTHENIA [None]
  - DECREASED APPETITE [None]
  - FEMORAL NECK FRACTURE [None]
  - VOMITING [None]
  - WEIGHT DECREASED [None]
